FAERS Safety Report 4727022-5 (Version None)
Quarter: 2005Q3

REPORT INFORMATION
  Report Type: 
  Country: None (occurrence: None)
  Receive Date: 20050726
  Receipt Date: 20050713
  Transmission Date: 20060218
  Serious: Yes (Disabling, Other)
  Sender: FDA-Public Use
  Company Number: 2005101572

PATIENT
  Sex: Female
  Weight: 63.5036 kg

DRUGS (10)
  1. DETROL LA [Suspect]
     Indication: POLLAKIURIA
     Dosage: 4 MG (4 MG, 1 IN 1 D), ORAL
     Route: 048
  2. DETROL LA [Suspect]
     Indication: URINARY INCONTINENCE
     Dosage: 4 MG (4 MG, 1 IN 1 D), ORAL
     Route: 048
  3. SYNTHROID [Suspect]
     Indication: THYROID DISORDER
     Dosage: 150 MCG (150 MCG, 1 IN 1 D)
  4. FOSAMAX [Concomitant]
  5. ACTONEL [Concomitant]
  6. EVISTA [Concomitant]
  7. ESTRACE [Concomitant]
  8. MULTIVITAMIN [Concomitant]
  9. CALCIUM WITH VITAMIN D (CALCIUM PHOSPHATE, CALCIUM SODIUM LACTATE, ERG [Concomitant]
  10. MAGNESIUM (MAGNESIUM) [Concomitant]

REACTIONS (6)
  - BLINDNESS [None]
  - CATARACT [None]
  - DRY MOUTH [None]
  - MACULAR HOLE [None]
  - MEMORY IMPAIRMENT [None]
  - REFUSAL OF TREATMENT BY PATIENT [None]
